FAERS Safety Report 6072837-7 (Version None)
Quarter: 2009Q1

REPORT INFORMATION
  Report Type: 
  Country: None (occurrence: None)
  Receive Date: 20090210
  Receipt Date: 20090114
  Transmission Date: 20090719
  Serious: Yes (Hospitalization)
  Sender: FDA-Public Use
  Company Number: JP-MERCK-0704USA01225

PATIENT
  Age: 70 Year
  Sex: Male

DRUGS (4)
  1. SINGULAIR [Suspect]
     Indication: ASTHMA
     Route: 048
     Dates: start: 20021101, end: 20040901
  2. BUDESONIDE [Concomitant]
     Indication: ASTHMA
     Dates: end: 20040101
  3. THEOPHYLLINE [Concomitant]
     Indication: ASTHMA
     Route: 065
  4. TULOBUTEROL [Concomitant]
     Indication: ASTHMA
     Route: 061

REACTIONS (2)
  - ASTHMA [None]
  - THERAPEUTIC RESPONSE DECREASED [None]
